FAERS Safety Report 5704747-6 (Version None)
Quarter: 2008Q2

REPORT INFORMATION
  Report Type: 
  Country: None (occurrence: None)
  Receive Date: 20080414
  Receipt Date: 20080404
  Transmission Date: 20081010
  Serious: Yes (Hospitalization)
  Sender: FDA-Public Use
  Company Number: GB-PFIZER INC-2007057626

PATIENT
  Age: 63 Year
  Sex: Male
  Weight: 83 kg

DRUGS (2)
  1. SUTENT [Suspect]
  2. PARACETAMOL [Concomitant]
     Route: 048

REACTIONS (2)
  - PERIANAL ABSCESS [None]
  - SKIN ULCER [None]
